FAERS Safety Report 4965451-5 (Version None)
Quarter: 2006Q2

REPORT INFORMATION
  Report Type: 
  Country: None (occurrence: None)
  Receive Date: 20060406
  Receipt Date: 20060403
  Transmission Date: 20061013
  Serious: Yes (Life-Threatening)
  Sender: FDA-Public Use
  Company Number: GB-MERCK-0604GBR00027

PATIENT
  Age: 90 Year
  Sex: Female
  Weight: 55 kg

DRUGS (4)
  1. COZAAR [Suspect]
     Route: 048
  2. WARFARIN [Suspect]
     Indication: CEREBROVASCULAR ACCIDENT PROPHYLAXIS
     Route: 048
     Dates: start: 20040101
  3. MEBEVERINE HYDROCHLORIDE [Suspect]
     Route: 048
  4. FOLIC ACID [Suspect]
     Route: 048

REACTIONS (1)
  - CEREBELLAR HAEMORRHAGE [None]
